FAERS Safety Report 6443933-7 (Version None)
Quarter: 2009Q4

REPORT INFORMATION
  Report Type: 
  Country: None (occurrence: None)
  Receive Date: 20091113
  Receipt Date: 20091103
  Transmission Date: 20100525
  Serious: Yes (Hospitalization)
  Sender: FDA-Public Use
  Company Number: 2009AP002306

PATIENT
  Age: 68 Year
  Sex: Female

DRUGS (11)
  1. CLARITHROMYCIN [Suspect]
     Dosage: 500 MG;BID
  2. NICOTINE [Suspect]
     Indication: SMOKING CESSATION THERAPY
     Dosage: PAT;TDER
     Dates: start: 20090401, end: 20090406
  3. PREDNISOLONE [Suspect]
     Indication: CHRONIC OBSTRUCTIVE PULMONARY DISEASE
     Dosage: 30 MG;INH
     Route: 055
     Dates: start: 20090401, end: 20090406
  4. AMLODIPINE [Concomitant]
  5. ASPIRIN [Concomitant]
  6. DOSULEPIN (DOSULEPIN) [Concomitant]
  7. OMEPRAZOLE [Concomitant]
  8. BUDESONIDE [Concomitant]
  9. FORMOTEROL (FORMOTEROL) [Concomitant]
  10. LEVOTHYROXINE SODIUM [Concomitant]
  11. SALBUTAMOL (SALBUTAMOL) [Concomitant]

REACTIONS (6)
  - DRUG INEFFECTIVE [None]
  - DRUG INTERACTION [None]
  - DYSPNOEA [None]
  - EXERCISE TOLERANCE DECREASED [None]
  - PRODUCTIVE COUGH [None]
  - SPUTUM DISCOLOURED [None]
